FAERS Safety Report 9444912 (Version 1)
Quarter: 2013Q3

REPORT INFORMATION
  Report Type: Spontaneous
  Country: US (occurrence: US)
  Receive Date: 20130807
  Receipt Date: 20130807
  Transmission Date: 20140515
  Serious: Yes (Other)
  Sender: FDA-Public Use
  Company Number: PHHY2013US081971

PATIENT
  Age: 25 Year
  Sex: Female

DRUGS (3)
  1. KETAMINE [Suspect]
     Route: 042
  2. CLOMIPRAMINE [Interacting]
  3. ESCITALOPRAM [Interacting]

REACTIONS (8)
  - Suicidal ideation [Unknown]
  - Dysphoria [Unknown]
  - Anxiety [Unknown]
  - Sleep disorder [Unknown]
  - Decreased appetite [Unknown]
  - Depressed mood [Unknown]
  - Anhedonia [Unknown]
  - Drug interaction [Unknown]
